FAERS Safety Report 5229230-6 (Version None)
Quarter: 2007Q1

REPORT INFORMATION
  Report Type: 
  Country: None (occurrence: None)
  Receive Date: 20061201
  Receipt Date: 20060802
  Transmission Date: 20070707
  Serious: No
  Sender: FDA-Public Use
  Company Number: US200608000938

PATIENT
  Age: 25 Year
  Sex: Female

DRUGS (4)
  1. CYMBALTA [Suspect]
     Indication: DIABETIC NEUROPATHY
     Dosage: SEE IMAGE
     Route: 048
     Dates: start: 20060101, end: 20060101
  2. CYMBALTA [Suspect]
     Indication: DIABETIC NEUROPATHY
     Dosage: SEE IMAGE
     Route: 048
     Dates: start: 20060101, end: 20060101
  3. CYMBALTA [Suspect]
     Indication: DIABETIC NEUROPATHY
     Dosage: SEE IMAGE
     Route: 048
     Dates: start: 20060101, end: 20060101
  4. CYMBALTA [Suspect]
     Indication: DIABETIC NEUROPATHY
     Dosage: SEE IMAGE
     Route: 048
     Dates: start: 20060101, end: 20060701

REACTIONS (3)
  - DEPRESSION [None]
  - EMOTIONAL DISORDER [None]
  - NAUSEA [None]
